FAERS Safety Report 4719217-1 (Version None)
Quarter: 2005Q3

REPORT INFORMATION
  Report Type: 
  Country: None (occurrence: None)
  Receive Date: 20050718
  Receipt Date: 20040616
  Transmission Date: 20060218
  Serious: Yes (Other)
  Sender: FDA-Public Use
  Company Number: PHEH2004US06587

PATIENT
  Age: 62 Year
  Sex: Female
  Weight: 79.4 kg

DRUGS (2)
  1. LOTENSIN HCT [Suspect]
     Dosage: TABLET
  2. LIPITOR [Suspect]

REACTIONS (5)
  - ALOPECIA [None]
  - BACK PAIN [None]
  - HYPOAESTHESIA [None]
  - MUSCLE SPASMS [None]
  - PARAESTHESIA [None]
